FAERS Safety Report 15590394 (Version 2)
Quarter: 2018Q4

REPORT INFORMATION
  Report Type: Spontaneous
  Country: US (occurrence: US)
  Receive Date: 20181106
  Receipt Date: 20181114
  Transmission Date: 20190205
  Serious: No
  Sender: FDA-Public Use
  Company Number: US-BAYER-2018-202274

PATIENT
  Age: 90 Year
  Sex: Male

DRUGS (1)
  1. MIRALAX [Suspect]
     Active Substance: POLYETHYLENE GLYCOL 3350
     Indication: GASTROINTESTINAL DISORDER
     Dosage: 17 G, UNK
     Route: 048

REACTIONS (4)
  - Product solubility abnormal [Unknown]
  - Poor quality product administered [Unknown]
  - Drug ineffective [Unknown]
  - Faeces hard [Unknown]
